FAERS Safety Report 14673313 (Version 1)
Quarter: 2018Q1

REPORT INFORMATION
  Report Type: Spontaneous
  Country: US (occurrence: US)
  Receive Date: 20180323
  Receipt Date: 20180323
  Transmission Date: 20180509
  Serious: No
  Sender: FDA-Public Use
  Company Number: US-BAYER-2018-048113

PATIENT
  Age: 80 Year
  Sex: Female
  Weight: 57.96 kg

DRUGS (2)
  1. MIRALAX [Suspect]
     Active Substance: POLYETHYLENE GLYCOL 3350
     Indication: GASTROINTESTINAL DISORDER
     Dosage: 1/2 CAPFUL DOSE
     Route: 048
  2. CHOLESTEROL [Concomitant]
     Active Substance: CHOLESTEROL

REACTIONS (5)
  - Product use issue [Unknown]
  - Underdose [Unknown]
  - Prescribed underdose [Unknown]
  - Diarrhoea [Unknown]
  - Drug ineffective [Unknown]
